FAERS Safety Report 8514166-5 (Version None)
Quarter: 2012Q3

REPORT INFORMATION
  Report Type: 
  Country: None (occurrence: None)
  Receive Date: 20120717
  Receipt Date: 20120703
  Transmission Date: 20120928
  Serious: Yes (Death)
  Sender: FDA-Public Use
  Company Number: JP-MYLANLABS-2012S1011540

PATIENT
  Age: 76 Year
  Sex: Male
  Weight: 70 kg

DRUGS (14)
  1. ALDACTONE [Concomitant]
     Indication: CARDIAC FAILURE
     Route: 048
     Dates: end: 20101014
  2. URIEF [Concomitant]
     Indication: BENIGN PROSTATIC HYPERPLASIA
     Route: 048
     Dates: end: 20101014
  3. WARFARIN SODIUM [Concomitant]
     Indication: CARDIOVERSION
     Route: 048
     Dates: end: 20101014
  4. ALENDRONATE SODIUM [Concomitant]
     Indication: OSTEOPOROSIS
     Route: 048
     Dates: end: 20101014
  5. SPIRIVA [Concomitant]
     Indication: CHRONIC OBSTRUCTIVE PULMONARY DISEASE
     Route: 055
     Dates: end: 20101014
  6. MAGNESIUM OXIDE [Concomitant]
     Indication: CONSTIPATION
     Route: 048
     Dates: end: 20101014
  7. CARBOPLATIN [Suspect]
     Indication: SMALL CELL LUNG CANCER STAGE UNSPECIFIED
     Dosage: DOSE UNIT: UNKNOWN
     Route: 041
     Dates: start: 20101004, end: 20101004
  8. THEOPHYLLINE [Concomitant]
     Indication: CHRONIC OBSTRUCTIVE PULMONARY DISEASE
     Route: 048
     Dates: end: 20101014
  9. AMBROXOL HYDROCHLORIDE [Concomitant]
     Indication: CHRONIC OBSTRUCTIVE PULMONARY DISEASE
     Route: 048
  10. ENALAPRIL MALEATE [Concomitant]
     Indication: CARDIAC FAILURE
     Route: 048
     Dates: end: 20101014
  11. SELTEPNON [Concomitant]
     Indication: GASTRIC ULCER
     Route: 048
     Dates: end: 20101014
  12. ETOPOSIDE [Suspect]
     Indication: SMALL CELL LUNG CANCER STAGE UNSPECIFIED
     Dosage: DOSE UNIT: UNKNOWN
     Route: 041
     Dates: start: 20101004, end: 20101006
  13. VASOLATOR [Concomitant]
     Indication: ANGINA PECTORIS
     Dates: end: 20101014
  14. SOTALOL HYDROCHLORIDE [Concomitant]
     Indication: VENTRICULAR TACHYCARDIA
     Route: 048
     Dates: end: 20101014

REACTIONS (8)
  - CARDIAC ARREST [None]
  - HEADACHE [None]
  - MALAISE [None]
  - THROMBOCYTOPENIA [None]
  - HYPOTENSION [None]
  - SEPSIS [None]
  - NEUTROPENIA [None]
  - DISSEMINATED INTRAVASCULAR COAGULATION [None]
